FAERS Safety Report 9580269 (Version 4)
Quarter: 2013Q4

REPORT INFORMATION
  Report Type: Spontaneous
  Country: TR (occurrence: TR)
  Receive Date: 20131002
  Receipt Date: 20131107
  Transmission Date: 20140711
  Serious: Yes (Other)
  Sender: FDA-Public Use
  Company Number: TR-ABBVIE-12P-161-0916325-00

PATIENT
  Age: 22 Year
  Sex: Female

DRUGS (2)
  1. DEPAKINE CHRONO TABLETS [Suspect]
     Indication: EPILEPSY
     Dosage: TIME TO ONSET: 11 YEARS(S)
     Route: 048
     Dates: start: 2000
  2. DEPAKINE CHRONO TABLETS [Suspect]
     Route: 048
     Dates: start: 2000

REACTIONS (5)
  - Mouth haemorrhage [Recovered/Resolved]
  - Vertigo [Recovered/Resolved]
  - Dizziness [Unknown]
  - Nausea [Recovered/Resolved]
  - Product physical issue [Unknown]
